FAERS Safety Report 8191823-4 (Version None)
Quarter: 2012Q1

REPORT INFORMATION
  Report Type: 
  Country: None (occurrence: None)
  Receive Date: 20120307
  Receipt Date: 20120302
  Transmission Date: 20120608
  Serious: Yes (Life-Threatening, Hospitalization, Disabling)
  Sender: FDA-Public Use
  Company Number: FR-PFIZER INC-2012057903

PATIENT
  Age: 35 Year
  Sex: Female

DRUGS (8)
  1. MYAMBUTOL [Suspect]
     Indication: PULMONARY TUBERCULOSIS
     Dosage: 400 MG, UNK
     Route: 048
     Dates: start: 20111014, end: 20111128
  2. ATARAX [Concomitant]
     Dosage: 25 MG, 1X/DAY
  3. SUSTIVA [Suspect]
     Dosage: 600 MG, UNK
  4. PARACETAMOL [Concomitant]
     Indication: PAIN
     Dosage: 1 G, AS NEEDED
  5. RIFABUTIN [Suspect]
     Indication: PULMONARY TUBERCULOSIS
     Dosage: 450 MG, 1X/DAY
     Route: 048
     Dates: start: 20111014, end: 20111128
  6. PYRAZINAMIDE [Suspect]
     Indication: PULMONARY TUBERCULOSIS
     Dosage: 1500 MG, 1X/DAY
     Route: 048
     Dates: start: 20111014, end: 20111128
  7. TRUVADA [Concomitant]
     Dosage: 1 DF DAILY
  8. RIMIFON [Suspect]
     Indication: PULMONARY TUBERCULOSIS
     Dosage: 200 MG, 1X/DAY
     Route: 048
     Dates: start: 20111014, end: 20111128

REACTIONS (2)
  - LIVER TRANSPLANT [None]
  - HEPATITIS FULMINANT [None]
